FAERS Safety Report 21007232 (Version 1)
Quarter: 2022Q2

REPORT INFORMATION
  Report Type: Report from Study
  Country: US (occurrence: US)
  Receive Date: 20220625
  Receipt Date: 20220625
  Transmission Date: 20220721
  Serious: No
  Sender: FDA-Public Use
  Company Number: US-CELGENE-USA-20211206195

PATIENT
  Age: 77 Year
  Sex: Female
  Weight: 88.45 kg

DRUGS (3)
  1. REVLIMID [Suspect]
     Active Substance: LENALIDOMIDE
     Indication: Myelodysplastic syndrome
     Route: 048
     Dates: start: 20210501
  2. REVLIMID [Suspect]
     Active Substance: LENALIDOMIDE
     Indication: Chronic lymphocytic leukaemia
     Route: 048
     Dates: start: 202106
  3. REVLIMID [Suspect]
     Active Substance: LENALIDOMIDE
     Route: 065
     Dates: start: 20210507

REACTIONS (3)
  - Blood potassium decreased [Unknown]
  - Spinal stenosis [Not Recovered/Not Resolved]
  - Arthritis [Not Recovered/Not Resolved]

NARRATIVE: CASE EVENT DATE: 20210101
